FAERS Safety Report 7518361-3 (Version None)
Quarter: 2011Q2

REPORT INFORMATION
  Report Type: 
  Country: None (occurrence: None)
  Receive Date: 20110602
  Receipt Date: 20090725
  Transmission Date: 20111010
  Serious: Yes (Hospitalization, Other)
  Sender: FDA-Public Use
  Company Number: US-BAYER-200927259NA

PATIENT
  Age: 60 Year
  Sex: Male
  Weight: 97.2 kg

DRUGS (17)
  1. VASOTEC [Concomitant]
     Dosage: 5 MG, BID
     Route: 048
     Dates: start: 20041018
  2. VANCOMYCIN [Concomitant]
     Dosage: UNK
     Route: 042
     Dates: start: 20041021, end: 20041021
  3. NICARDIPINE HCL [Concomitant]
     Dosage: UNK
     Route: 042
     Dates: start: 20041021, end: 20041021
  4. LEVOPHED [Concomitant]
     Dosage: UNK
     Route: 042
     Dates: start: 20041021, end: 20041021
  5. LIDOCAINE [Concomitant]
     Dosage: UNK
     Route: 042
     Dates: start: 20041021, end: 20041021
  6. ASPIRIN [Concomitant]
     Dosage: 325 MG, QD
     Route: 048
     Dates: start: 20041018
  7. HEPARIN [Concomitant]
     Dosage: 1000 UNITS PER HOUR
     Route: 042
     Dates: start: 20041018
  8. NITROGLYCERIN [Concomitant]
     Dosage: UNK
     Route: 042
     Dates: start: 20041021
  9. HEPARIN [Concomitant]
     Dosage: UNK
     Route: 042
     Dates: start: 20041018, end: 20041024
  10. MILRINONE [Concomitant]
     Dosage: UNK
     Route: 042
     Dates: start: 20041021
  11. ZINACEF [Concomitant]
     Dosage: 1 GM ON CALL TO OR
     Dates: start: 20041021
  12. LASIX [Concomitant]
     Dosage: UNK
     Route: 042
     Dates: start: 20041021, end: 20041021
  13. TRASYLOL [Suspect]
     Indication: CORONARY ARTERY BYPASS
     Dosage: 1 ML, 100 ML, 25 ML/HR
     Route: 042
     Dates: start: 20041021, end: 20041021
  14. METOPROLOL TARTRATE [Concomitant]
     Dosage: 12.5 MG, QD
     Route: 048
     Dates: start: 20041018
  15. ZOCOR [Concomitant]
     Dosage: 40 MG, HS
     Route: 048
     Dates: start: 20041018
  16. INSULIN [Concomitant]
     Dosage: UNK
     Route: 042
     Dates: start: 20041021
  17. KEFLEX [Concomitant]
     Dosage: 1 GM NIGHT BEFORE SURGERY
     Route: 042
     Dates: start: 20041020

REACTIONS (4)
  - CEREBROVASCULAR ACCIDENT [None]
  - EMOTIONAL DISTRESS [None]
  - ANXIETY [None]
  - INJURY [None]
